FAERS Safety Report 23476274 (Version 1)
Quarter: 2024Q1

REPORT INFORMATION
  Report Type: Report from Study
  Country: US (occurrence: US)
  Receive Date: 20240204
  Receipt Date: 20240204
  Transmission Date: 20240410
  Serious: No
  Sender: FDA-Public Use
  Company Number: US-EXELIXIS-CABO-23062503

PATIENT
  Sex: Female

DRUGS (5)
  1. CABOMETYX [Suspect]
     Active Substance: CABOZANTINIB S-MALATE
     Indication: Renal cell carcinoma
     Dosage: 20 MG, QD
     Route: 048
     Dates: start: 2020, end: 20230417
  2. ANASTROZOLE [Concomitant]
     Active Substance: ANASTROZOLE
  3. CAPTOPRIL [Concomitant]
     Active Substance: CAPTOPRIL
  4. Calcium+vit d [Concomitant]
  5. TYLENOL [Concomitant]
     Active Substance: ACETAMINOPHEN

REACTIONS (4)
  - Abdominal discomfort [Unknown]
  - Cholelithiasis [Unknown]
  - Blood pressure increased [Recovering/Resolving]
  - Nausea [Unknown]
